FAERS Safety Report 5722134-1 (Version None)
Quarter: 2008Q2

REPORT INFORMATION
  Report Type: 
  Country: None (occurrence: None)
  Receive Date: 20080429
  Receipt Date: 20070517
  Transmission Date: 20081010
  Serious: No
  Sender: FDA-Public Use
  Company Number: US-ASTRAZENECA-2007UW12333

PATIENT
  Age: 82 Year
  Sex: Female
  Weight: 73.5 kg

DRUGS (4)
  1. NEXIUM [Suspect]
     Indication: GASTROOESOPHAGEAL REFLUX DISEASE
     Route: 048
     Dates: start: 20070515
  2. BLOOD PRESSURE PILL [Concomitant]
  3. WATER PILL [Concomitant]
  4. ARTHRITIS PILL [Concomitant]

REACTIONS (2)
  - RETCHING [None]
  - STOMACH DISCOMFORT [None]
